FAERS Safety Report 9773775 (Version 2)
Quarter: 2014Q1

REPORT INFORMATION
  Report Type: Report from Study
  Country: DE (occurrence: DE)
  Receive Date: 20131219
  Receipt Date: 20140123
  Transmission Date: 20141002
  Serious: Yes (Death, Hospitalization)
  Sender: FDA-Public Use
  Company Number: DE-ROCHE-1322849

PATIENT
  Age: 78 Year
  Sex: Male
  Weight: 68 kg

DRUGS (1)
  1. BEVACIZUMAB [Suspect]
     Indication: COLORECTAL CANCER METASTATIC
     Route: 065

REACTIONS (4)
  - Cardiac failure [Fatal]
  - Hypovolaemic shock [Fatal]
  - Upper gastrointestinal haemorrhage [Not Recovered/Not Resolved]
  - Angiodysplasia [Not Recovered/Not Resolved]
